FAERS Safety Report 24394378 (Version 2)
Quarter: 2024Q4

REPORT INFORMATION
  Report Type: Spontaneous
  Country: CN (occurrence: CN)
  Receive Date: 20241004
  Receipt Date: 20241021
  Transmission Date: 20250115
  Serious: Yes (Other)
  Sender: NOVO NORDISK
  Company Number: CN-NOVOPROD-1289306

PATIENT
  Sex: Male
  Weight: 75 kg

DRUGS (2)
  1. NOVOLIN R [Suspect]
     Active Substance: INSULIN HUMAN
     Indication: Type 2 diabetes mellitus
     Dosage: 34 IU, QD(12 IU IN THE MORNING, 10 IU AT NOON AND 12 IU IN THE EVENING)
     Route: 058
     Dates: start: 2008
  2. GLIQUIDONE [Concomitant]
     Active Substance: GLIQUIDONE
     Dosage: UNK

REACTIONS (4)
  - Blindness [Not Recovered/Not Resolved]
  - Maculopathy [Not Recovered/Not Resolved]
  - Osteonecrosis [Not Recovered/Not Resolved]
  - Condition aggravated [Not Recovered/Not Resolved]

NARRATIVE: CASE EVENT DATE: 20160101
